FAERS Safety Report 24751056 (Version 1)
Quarter: 2024Q4

REPORT INFORMATION
  Report Type: Spontaneous
  Country: CA (occurrence: CA)
  Receive Date: 20241219
  Receipt Date: 20241219
  Transmission Date: 20250115
  Serious: Yes (Other)
  Sender: NOVO NORDISK
  Company Number: None

PATIENT
  Age: 69 Year
  Sex: Female

DRUGS (1)
  1. OZEMPIC [Suspect]
     Active Substance: SEMAGLUTIDE
     Indication: Product used for unknown indication
     Dosage: 1.34 MILLIGRAM/MILLILITER
     Route: 058

REACTIONS (8)
  - Diabetic ketoacidosis [Unknown]
  - Alanine aminotransferase increased [Unknown]
  - Blood alkaline phosphatase increased [Unknown]
  - Lipase increased [Unknown]
  - Impaired gastric emptying [Unknown]
  - Nausea [Unknown]
  - Pancreatitis [Unknown]
  - Vomiting [Unknown]
